FAERS Safety Report 8842514 (Version 1)
Quarter: 2012Q4

REPORT INFORMATION
  Report Type: 
  Country: US (occurrence: US)
  Receive Date: 20121016
  Receipt Date: 20121016
  Transmission Date: 20130627
  Serious: Yes (Hospitalization)
  Sender: FDA-Public Use
  Company Number: US-PFIZER INC-2012255055

PATIENT
  Age: 61 Year
  Sex: Female
  Weight: 73.47 kg

DRUGS (8)
  1. LYRICA [Suspect]
     Indication: DIABETIC NEUROPATHY
     Dosage: 225 mg, 2x/day
     Route: 048
     Dates: end: 20120825
  2. ALLOPURINOL [Concomitant]
     Indication: BLOOD URIC ACID ABNORMAL
     Dosage: 100 mg, daily
  3. BUSPIRONE [Concomitant]
     Indication: ANXIETY
     Dosage: 5 mg, 3x/day
  4. LASIX [Concomitant]
     Indication: DIURETIC THERAPY
     Dosage: 40 mg, 2x/day
  5. METFORMIN [Concomitant]
     Indication: DIABETES MELLITUS
     Dosage: 100 mg, 2x/day
  6. PROTONIX [Concomitant]
     Indication: GASTROOESOPHAGEAL REFLUX DISEASE
     Dosage: 40 mg, daily
  7. VYTORIN [Concomitant]
     Indication: BLOOD CHOLESTEROL ABNORMAL
     Dosage: 10/40 mg, daily
  8. GLIPIZIDE [Concomitant]
     Indication: DIABETES MELLITUS
     Dosage: 5 mg, as needed

REACTIONS (3)
  - Headache [Unknown]
  - Chest pain [Unknown]
  - Hypertension [Unknown]
